FAERS Safety Report 9024978 (Version 3)
Quarter: 2013Q2

REPORT INFORMATION
  Report Type: Spontaneous
  Country: GE (occurrence: None)
  Receive Date: 20130104
  Receipt Date: 20130522
  Transmission Date: 20140414
  Serious: Yes (Life-Threatening, Other)
  Sender: FDA-Public Use
  Company Number: ADR-2013-00002

PATIENT
  Sex: 0

DRUGS (3)
  1. LIORESAL INTRATHECAL [Suspect]
     Indication: CEREBRAL PALSY
     Dosage: 200 MCG/6 HRS
  2. MIDAZOLAM [Concomitant]
  3. PROPOFOL [Concomitant]

REACTIONS (7)
  - Dyspnoea [None]
  - Vomiting [None]
  - Withdrawal syndrome [None]
  - Muscle spasms [None]
  - Somnolence [None]
  - Cerebrospinal fluid leakage [None]
  - Device dislocation [None]
